FAERS Safety Report 18326820 (Version 1)
Quarter: 2020Q3

REPORT INFORMATION
  Report Type: Spontaneous
  Country: RU (occurrence: RU)
  Receive Date: 20200930
  Receipt Date: 20200930
  Transmission Date: 20201103
  Serious: Yes (Other)
  Sender: FDA-Public Use
  Company Number: RU-009507513-2009RUS009698

PATIENT
  Age: 68 Year
  Sex: Male
  Weight: 90 kg

DRUGS (3)
  1. STEROFUNDIN [Concomitant]
     Active Substance: CALCIUM CHLORIDE\MAGNESIUM CHLORIDE\POTASSIUM CHLORIDE\SODIUM ACETATE\SODIUM CHLORIDE
     Dosage: 500 ML
     Route: 041
     Dates: start: 20191231, end: 20200119
  2. HEPARIN [Concomitant]
     Active Substance: HEPARIN SODIUM
     Indication: THROMBOSIS PROPHYLAXIS
     Dosage: 5000 IU 3 TIMES A DAY
     Route: 058
  3. INVANZ [Suspect]
     Active Substance: ERTAPENEM SODIUM
     Indication: INTERVERTEBRAL DISCITIS
     Dosage: QD
     Route: 041
     Dates: start: 20200117, end: 20200120

REACTIONS (1)
  - Toxic skin eruption [Recovering/Resolving]

NARRATIVE: CASE EVENT DATE: 20200118
